FAERS Safety Report 4446751-4 (Version None)
Quarter: 2004Q3

REPORT INFORMATION
  Report Type: 
  Country: None (occurrence: None)
  Receive Date: 20040910
  Receipt Date: 20040826
  Transmission Date: 20050211
  Serious: No
  Sender: FDA-Public Use
  Company Number: RENA-11130

PATIENT
  Age: 45 Year
  Sex: Female

DRUGS (8)
  1. RENAGEL [Suspect]
     Indication: HYPERPHOSPHATAEMIA
  2. FERROUS SULFATE TAB [Concomitant]
  3. DOXERCALCIFEROL [Concomitant]
  4. EPOETIN ALFA [Concomitant]
  5. METHADONE HCL [Concomitant]
  6. CLONIDINE HCL [Concomitant]
  7. ROFECOXIB [Concomitant]
  8. GABAPENTIN [Concomitant]

REACTIONS (16)
  - ARTHROPOD BITE [None]
  - BLOOD ALBUMIN DECREASED [None]
  - CALCINOSIS [None]
  - DIFFICULTY IN WALKING [None]
  - DYSTROPHIC CALCIFICATION [None]
  - INTENTIONAL SELF-INJURY [None]
  - MASS [None]
  - METASTASIS [None]
  - OEDEMA PERIPHERAL [None]
  - SKIN DISORDER [None]
  - SKIN HYPERTROPHY [None]
  - SKIN INDURATION [None]
  - SKIN NODULE [None]
  - SKIN TIGHTNESS [None]
  - TENDERNESS [None]
  - TREATMENT NONCOMPLIANCE [None]
